FAERS Safety Report 17336980 (Version 10)
Quarter: 2020Q2

REPORT INFORMATION
  Report Type: Report from Study
  Country: BR (occurrence: BR)
  Receive Date: 20200128
  Receipt Date: 20200417
  Transmission Date: 20200713
  Serious: Yes (Hospitalization)
  Sender: FDA-Public Use
  Company Number: BR-EISAI MEDICAL RESEARCH-EC-2020-068499

PATIENT
  Age: 47 Year
  Sex: Female
  Weight: 100 kg

DRUGS (12)
  1. LENVATINIB [Suspect]
     Active Substance: LENVATINIB
     Indication: ENDOMETRIAL CANCER
     Route: 048
     Dates: start: 20191022, end: 20200107
  2. DOMPERIDONE [Concomitant]
     Active Substance: DOMPERIDONE
     Dates: start: 20190906, end: 20200108
  3. PEMBROLIZUMAB. [Suspect]
     Active Substance: PEMBROLIZUMAB
     Indication: ENDOMETRIAL CANCER
     Route: 041
     Dates: start: 20191022, end: 20191203
  4. DIPYRONE [Concomitant]
     Active Substance: DIPYRONE
     Dates: start: 201906
  5. MAGNESIUM (UNSPECIFIED) [Concomitant]
     Active Substance: MAGNESIUM
     Dates: start: 20191111, end: 20200108
  6. LENVATINIB [Suspect]
     Active Substance: LENVATINIB
     Route: 048
     Dates: start: 20200122
  7. PEMBROLIZUMAB. [Suspect]
     Active Substance: PEMBROLIZUMAB
     Route: 041
     Dates: start: 20191223, end: 20191223
  8. LACTULOSE. [Concomitant]
     Active Substance: LACTULOSE
     Dates: start: 20190823
  9. OMEPRAZOLE. [Concomitant]
     Active Substance: OMEPRAZOLE
     Dates: start: 201906, end: 20200108
  10. MORPHINE [Concomitant]
     Active Substance: MORPHINE
     Dates: start: 20190823
  11. ONDANSETRON [Concomitant]
     Active Substance: ONDANSETRON
     Dates: start: 201906, end: 20200108
  12. PEMBROLIZUMAB. [Suspect]
     Active Substance: PEMBROLIZUMAB
     Route: 041
     Dates: start: 20200122

REACTIONS (2)
  - Dehydration [Recovered/Resolved]
  - Tonsillitis [Recovered/Resolved]

NARRATIVE: CASE EVENT DATE: 20200106
